FAERS Safety Report 7360557-8 (Version None)
Quarter: 2011Q1

REPORT INFORMATION
  Report Type: 
  Country: None (occurrence: None)
  Receive Date: 20110310
  Receipt Date: 20110225
  Transmission Date: 20110831
  Serious: Yes (Hospitalization)
  Sender: FDA-Public Use
  Company Number: TPA2011A00916

PATIENT
  Sex: Male

DRUGS (3)
  1. SPIRONOLACTONE [Concomitant]
  2. ADENURIC (FEBUXOSTAT) [Suspect]
     Indication: HYPERURICAEMIA
     Dosage: 120 MG (120 MG,1 IN 1 D) ORAL
     Route: 048
     Dates: start: 20100503, end: 20110225
  3. FUROSEMIDE [Concomitant]

REACTIONS (5)
  - CARDIAC FAILURE [None]
  - GASTROENTERITIS [None]
  - MYOCARDIAL INFARCTION [None]
  - DEHYDRATION [None]
  - RENAL FAILURE ACUTE [None]
